FAERS Safety Report 16533703 (Version 1)
Quarter: 2019Q3

REPORT INFORMATION
  Report Type: Spontaneous
  Country: US (occurrence: US)
  Receive Date: 20190704
  Receipt Date: 20190704
  Transmission Date: 20191004
  Serious: No
  Sender: FDA-Public Use
  Company Number: US-BRISTOL-MYERS SQUIBB COMPANY-BMS-2019-062929

PATIENT
  Sex: Female

DRUGS (2)
  1. OPDIVO [Suspect]
     Active Substance: NIVOLUMAB
     Indication: LIPOSARCOMA
     Dosage: UNAVAILABLE
     Route: 065
     Dates: start: 20190617
  2. YERVOY [Suspect]
     Active Substance: IPILIMUMAB
     Indication: LIPOSARCOMA
     Dosage: UNK
     Route: 065
     Dates: start: 20190617

REACTIONS (9)
  - Fatigue [Unknown]
  - Frustration tolerance decreased [Unknown]
  - Intentional product use issue [Unknown]
  - Rash pruritic [Unknown]
  - Mood altered [Unknown]
  - Headache [Unknown]
  - Cough [Unknown]
  - Bone pain [Unknown]
  - Decreased appetite [Unknown]
